FAERS Safety Report 11771729 (Version 1)
Quarter: 2015Q4

REPORT INFORMATION
  Report Type: Spontaneous
  Country: US (occurrence: None)
  Receive Date: 20151123
  Receipt Date: 20151123
  Transmission Date: 20160304
  Serious: Yes (Life-Threatening)
  Sender: FDA-Public Use
  Company Number: None

PATIENT
  Age: 68 Year
  Sex: Female
  Weight: 76.2 kg

DRUGS (7)
  1. CALCIUM [Concomitant]
     Active Substance: CALCIUM
  2. SULFURZYME  ESSENTIAL OILS [Concomitant]
  3. YOUNG LIVING PROBIOTIC [Concomitant]
  4. RESTASIS [Concomitant]
     Active Substance: CYCLOSPORINE
  5. EFFEXOR [Concomitant]
     Active Substance: VENLAFAXINE HYDROCHLORIDE
  6. EXCEDRIN MIGRAINE [Concomitant]
     Active Substance: ACETAMINOPHEN\ASPIRIN\CAFFEINE
  7. GABAPENTIN 300MG GENERIC [Suspect]
     Active Substance: GABAPENTIN
     Indication: BACK PAIN
     Route: 048
     Dates: start: 20151112, end: 20151118

REACTIONS (9)
  - Coordination abnormal [None]
  - Condition aggravated [None]
  - Activities of daily living impaired [None]
  - Feeling abnormal [None]
  - Product quality issue [None]
  - Dizziness [None]
  - Depression [None]
  - Memory impairment [None]
  - Headache [None]

NARRATIVE: CASE EVENT DATE: 20151118
